FAERS Safety Report 10071409 (Version 1)
Quarter: 2014Q2

REPORT INFORMATION
  Report Type: Spontaneous
  Country: JP (occurrence: JP)
  Receive Date: 20140410
  Receipt Date: 20140410
  Transmission Date: 20141212
  Serious: Yes (Other)
  Sender: FDA-Public Use
  Company Number: PHHY2014JP041305

PATIENT
  Age: 35 Day
  Sex: Male

DRUGS (7)
  1. PREDNISOLONE [Suspect]
     Indication: HAEMANGIOMA-THROMBOCYTOPENIA SYNDROME
     Dosage: 2-3 MG/KG, UNK
  2. PROPRANOLOL [Suspect]
     Dosage: 2-3 MG/KG, UNK
  3. CARBOPLATIN [Suspect]
     Indication: HAEMANGIOMA-THROMBOCYTOPENIA SYNDROME
     Dosage: 15 MG/KG, MONTHLY
  4. VINCRISTINE [Suspect]
     Indication: HAEMANGIOMA-THROMBOCYTOPENIA SYNDROME
     Dosage: 0.15 MG/KG, UNK
  5. ACTINOMYCIN D [Suspect]
     Indication: HAEMANGIOMA-THROMBOCYTOPENIA SYNDROME
     Dosage: 0.015 MG/KG, QD
  6. CYCLOPHOSPHAMIDE [Suspect]
     Indication: HAEMANGIOMA-THROMBOCYTOPENIA SYNDROME
     Dosage: 40 MG/KG, UNK
  7. INTERFERON [Concomitant]
     Indication: HAEMANGIOMA-THROMBOCYTOPENIA SYNDROME

REACTIONS (7)
  - Drug resistance [Unknown]
  - Neutropenia [Unknown]
  - Osteoporosis [Unknown]
  - Decreased appetite [Unknown]
  - Growth retardation [Unknown]
  - Constipation [Unknown]
  - Drug ineffective [Unknown]
